FAERS Safety Report 6369957-6 (Version None)
Quarter: 2009Q3

REPORT INFORMATION
  Report Type: 
  Country: None (occurrence: None)
  Receive Date: 20090923
  Receipt Date: 20070501
  Transmission Date: 20100115
  Serious: Yes (Other)
  Sender: FDA-Public Use
  Company Number: US-ASTRAZENECA-2006UW06078

PATIENT
  Age: 17520 Day
  Sex: Male
  Weight: 120.1 kg

DRUGS (33)
  1. SEROQUEL [Suspect]
     Indication: BIPOLAR DISORDER
     Route: 048
     Dates: start: 19960101, end: 20050101
  2. SEROQUEL [Suspect]
     Indication: HALLUCINATION, AUDITORY
     Route: 048
     Dates: start: 19960101, end: 20050101
  3. SEROQUEL [Suspect]
     Indication: TACHYPHRENIA
     Route: 048
     Dates: start: 19960101, end: 20050101
  4. SEROQUEL [Suspect]
     Indication: SLEEP DISORDER
     Route: 048
     Dates: start: 19960101, end: 20050101
  5. SEROQUEL [Suspect]
     Dosage: 75 TO 500 MG DAILY
     Route: 048
     Dates: start: 20020803
  6. SEROQUEL [Suspect]
     Dosage: 75 TO 500 MG DAILY
     Route: 048
     Dates: start: 20020803
  7. SEROQUEL [Suspect]
     Dosage: 75 TO 500 MG DAILY
     Route: 048
     Dates: start: 20020803
  8. SEROQUEL [Suspect]
     Dosage: 75 TO 500 MG DAILY
     Route: 048
     Dates: start: 20020803
  9. ZYPREXA [Concomitant]
     Dates: start: 20000101, end: 20050101
  10. PAXIL [Concomitant]
     Indication: DEPRESSION
     Dates: start: 19990101
  11. PAXIL [Concomitant]
     Dosage: 10-200 MG DAILY
     Route: 048
  12. CLONAZEPAM [Concomitant]
     Indication: ANXIETY
     Route: 048
  13. PROPRANOLOL [Concomitant]
     Dosage: 30 TO 60 MG DAILY
     Route: 048
  14. OLANZAPINE [Concomitant]
     Dosage: 10 - 20 MG DAILY
     Route: 048
  15. LISINOPRIL [Concomitant]
     Indication: BLOOD PRESSURE
     Route: 048
  16. LEVOTHYROXINE SODIUM [Concomitant]
     Dosage: 0.05 - 0.125 MG EVERY MORNING
     Route: 048
  17. CHOLESTYRAMINE [Concomitant]
     Indication: BLOOD CHOLESTEROL
     Dosage: 1 TEASPOON IN LIQUID. DRINK THREE TIMES A DAY
     Route: 048
  18. BUSPIRONE HCL [Concomitant]
     Route: 048
  19. TYLENOL (CAPLET) [Concomitant]
     Indication: PAIN
     Dosage: 500 MG FOUR TIMES A DAY AS REQUIRED
     Route: 048
  20. GEMFIBROZIL [Concomitant]
     Indication: BLOOD TRIGLYCERIDES
     Route: 048
  21. METHOCARBAMOL [Concomitant]
     Indication: MUSCLE SPASMS
     Dosage: 500-2000 MG AT NIGHT
     Route: 048
  22. QUININE SULFATE [Concomitant]
     Indication: MUSCLE SPASMS
     Route: 048
  23. VALPROIC ACID [Concomitant]
     Dosage: 1250-2250 MG DAILY
     Route: 048
  24. ATORVASTATIN [Concomitant]
     Indication: BLOOD CHOLESTEROL
     Route: 048
  25. SIMVASTATIN [Concomitant]
     Route: 048
  26. GABAPENTIN [Concomitant]
     Route: 048
  27. PROMETHAZINE [Concomitant]
     Indication: NAUSEA
     Dosage: 25 MG EVERY SIX HOURS AS NEEDED
     Route: 048
  28. PROMETHAZINE [Concomitant]
     Indication: MIGRAINE
     Dosage: 25 MG EVERY SIX HOURS AS NEEDED
     Route: 048
  29. DICLOFENAC SODIUM [Concomitant]
     Indication: ARTHRALGIA
     Route: 048
  30. FLUNISOLIDE [Concomitant]
     Indication: RHINITIS ALLERGIC
     Dosage: INHALE 1 SPRAY TWO TIMES A DAY
     Route: 045
  31. TOPIRAMATE [Concomitant]
     Indication: HEADACHE
     Dosage: 25-200 MG DAILY
     Route: 048
  32. WELLBUTRIN [Concomitant]
     Route: 048
  33. PANTOPRAZOLE SODIUM [Concomitant]
     Indication: GASTROOESOPHAGEAL REFLUX DISEASE
     Route: 048

REACTIONS (6)
  - BLOOD CHOLESTEROL INCREASED [None]
  - BLOOD TRIGLYCERIDES INCREASED [None]
  - DIABETES MELLITUS [None]
  - NEURALGIA [None]
  - OBESITY [None]
  - PANCREATITIS [None]
